FAERS Safety Report 5846957-3 (Version None)
Quarter: 2008Q3

REPORT INFORMATION
  Report Type: 
  Country: None (occurrence: None)
  Receive Date: 20080815
  Receipt Date: 20080806
  Transmission Date: 20090109
  Serious: Yes (Other)
  Sender: FDA-Public Use
  Company Number: US-ASTRAZENECA-2008UW16121

PATIENT
  Age: 90 Year
  Sex: Female
  Weight: 46.3 kg

DRUGS (9)
  1. NEXIUM [Suspect]
     Indication: NAUSEA
     Route: 048
     Dates: start: 20080805
  2. SYNTHROID [Concomitant]
  3. SIMVASTATIN [Concomitant]
  4. TOPROL-XL [Concomitant]
     Route: 048
  5. ACYCLOVIR [Concomitant]
  6. QUINAPRIL [Concomitant]
  7. ASPIRIN [Concomitant]
     Dosage: 81 MG
  8. FISH OIL [Concomitant]
  9. PROPOXYPHENE AND ACETAMINOPHEN [Concomitant]
     Dosage: 100/650

REACTIONS (1)
  - SUICIDAL IDEATION [None]
